FAERS Safety Report 8988144 (Version 3)
Quarter: 2013Q1

REPORT INFORMATION
  Report Type: Report from Study
  Country: DE (occurrence: DE)
  Receive Date: 20121227
  Receipt Date: 20130218
  Transmission Date: 20140127
  Serious: Yes (Death, Hospitalization)
  Sender: FDA-Public Use
  Company Number: DE-AMGEN-DEUCT2012082757

PATIENT
  Sex: Male

DRUGS (4)
  1. PANITUMUMAB [Suspect]
     Indication: BILE DUCT CANCER
     Dosage: 9.05 MG/KG, UNK
     Dates: start: 20121120, end: 20121120
  2. CISPLATIN [Concomitant]
     Indication: BILE DUCT CANCER
     Dosage: 25 MG/M2, UNK
     Dates: start: 20121120, end: 20121127
  3. GEMCITABINE [Concomitant]
     Indication: BILE DUCT CANCER
     Dosage: 1000 MG/M2, UNK
     Dates: start: 20121120, end: 20121127
  4. RED BLOOD CELLS, CONCENTRATED [Concomitant]
     Indication: ANAEMIA

REACTIONS (1)
  - Haemolysis [Fatal]
